FAERS Safety Report 7150271-6 (Version None)
Quarter: 2010Q4

REPORT INFORMATION
  Report Type: 
  Country: None (occurrence: None)
  Receive Date: 20101210
  Receipt Date: 20101129
  Transmission Date: 20110411
  Serious: Yes (Other)
  Sender: FDA-Public Use
  Company Number: DE-JNJFOC-20101200522

PATIENT
  Age: 49 Year
  Sex: Female

DRUGS (3)
  1. SIMPONI [Suspect]
     Indication: ANKYLOSING SPONDYLITIS
     Route: 058
  2. SIMPONI [Suspect]
     Indication: PSORIATIC ARTHROPATHY
     Route: 058
  3. SIMPONI [Suspect]
     Indication: RHEUMATOID ARTHRITIS
     Route: 058

REACTIONS (1)
  - RENAL FAILURE [None]
